FAERS Safety Report 6653097-2 (Version None)
Quarter: 2010Q1

REPORT INFORMATION
  Report Type: 
  Country: None (occurrence: None)
  Receive Date: 20100311
  Receipt Date: 20090928
  Transmission Date: 20100710
  Serious: Yes (Other)
  Sender: FDA-Public Use
  Company Number: 2009255012

PATIENT
  Age: 43 Year
  Sex: Female
  Weight: 83.9 kg

DRUGS (1)
  1. NIFEDIPINE (NIFEDIPINE) MODIFIED-RELEASE TABLET [Suspect]
     Indication: HYPERTENSION
     Dosage: 90 MG, 1X/DAY
     Dates: start: 20070101

REACTIONS (3)
  - BLOOD PRESSURE INCREASED [None]
  - DRUG INEFFECTIVE [None]
  - MEDICATION RESIDUE [None]
